FAERS Safety Report 14187413 (Version 1)
Quarter: 2017Q4

REPORT INFORMATION
  Report Type: Spontaneous
  Country: US (occurrence: US)
  Receive Date: 20171113
  Receipt Date: 20171113
  Transmission Date: 20180321
  Serious: No
  Sender: FDA-Public Use
  Company Number: None

PATIENT
  Age: 28 Year
  Sex: Female
  Weight: 45 kg

DRUGS (2)
  1. CLARITIN [Concomitant]
     Active Substance: LORATADINE
  2. MIBELAS 24 FE [Suspect]
     Active Substance: ETHINYL ESTRADIOL\NORETHINDRONE ACETATE
     Indication: PREMENSTRUAL DYSPHORIC DISORDER
     Dates: start: 20170621, end: 20171113

REACTIONS (5)
  - Breast tenderness [None]
  - Product substitution issue [None]
  - Loss of libido [None]
  - Breast swelling [None]
  - Vaginal discharge [None]
